FAERS Safety Report 4388006-2 (Version None)
Quarter: 2004Q2

REPORT INFORMATION
  Report Type: 
  Country: None (occurrence: None)
  Receive Date: 20040607
  Receipt Date: 20031112
  Transmission Date: 20050107
  Serious: Yes (Hospitalization)
  Sender: FDA-Public Use
  Company Number: 351755

PATIENT
  Sex: Female

DRUGS (1)
  1. ACCUTANE [Suspect]
     Indication: DRUG USE FOR UNKNOWN INDICATION
     Dosage: ORAL
     Route: 048
     Dates: start: 20030915, end: 20031109

REACTIONS (7)
  - DIZZINESS [None]
  - HYPERSENSITIVITY [None]
  - LOSS OF CONSCIOUSNESS [None]
  - NAUSEA [None]
  - OEDEMA PERIPHERAL [None]
  - SWELLING [None]
  - URTICARIA [None]
